FAERS Safety Report 8111085-3 (Version None)
Quarter: 2012Q1

REPORT INFORMATION
  Report Type: 
  Country: None (occurrence: None)
  Receive Date: 20120203
  Receipt Date: 20110407
  Transmission Date: 20120608
  Serious: No
  Sender: FDA-Public Use
  Company Number: US-GLAXOSMITHKLINE-A0921817A

PATIENT
  Age: 67 Year
  Sex: Female

DRUGS (2)
  1. LAMICTAL [Suspect]
     Indication: EPILEPSY
     Dosage: 100MG THREE TIMES PER DAY
     Route: 048
     Dates: start: 19930101
  2. DILANTIN [Concomitant]

REACTIONS (4)
  - DRY MOUTH [None]
  - OEDEMA MOUTH [None]
  - LIP DRY [None]
  - LIP PAIN [None]
